FAERS Safety Report 18254140 (Version 2)
Quarter: 2020Q3

REPORT INFORMATION
  Report Type: Report from Study
  Country: None (occurrence: UA)
  Receive Date: 20200910
  Receipt Date: 20200916
  Transmission Date: 20201103
  Serious: Yes (Hospitalization)
  Sender: FDA-Public Use
  Company Number: UA-ABBVIE-20P-269-3552709-00

PATIENT
  Age: 62 Year
  Sex: Male
  Weight: 99 kg

DRUGS (4)
  1. METAMIN [Concomitant]
     Indication: DIABETES MELLITUS
     Route: 048
     Dates: start: 20200331
  2. ISONIAZID. [Concomitant]
     Active Substance: ISONIAZID
     Indication: LATENT TUBERCULOSIS
     Route: 048
     Dates: start: 20200407
  3. MELOXICAM. [Concomitant]
     Active Substance: MELOXICAM
     Indication: PSORIATIC ARTHROPATHY
     Route: 048
     Dates: start: 20200110
  4. RISANKIZUMAB [Suspect]
     Active Substance: RISANKIZUMAB
     Indication: PSORIATIC ARTHROPATHY
     Dosage: WK 0, 4, 16
     Route: 058
     Dates: start: 20200406

REACTIONS (1)
  - Pneumonia viral [Recovered/Resolved]

NARRATIVE: CASE EVENT DATE: 20200831
